FAERS Safety Report 13005123 (Version 1)
Quarter: 2016Q4

REPORT INFORMATION
  Report Type: Spontaneous
  Country: IT (occurrence: IT)
  Receive Date: 20161207
  Receipt Date: 20161207
  Transmission Date: 20170207
  Serious: Yes (Hospitalization)
  Sender: FDA-Public Use
  Company Number: IT-ROCHE-1864216

PATIENT
  Age: 45 Year
  Sex: Female

DRUGS (1)
  1. ROCEFIN [Suspect]
     Active Substance: CEFTRIAXONE SODIUM
     Indication: SOFT TISSUE DISORDER
     Dosage: ^1 G/3.5 ML -1 VIAL POWDER + 1 VIAL SOLVENT
     Route: 030
     Dates: start: 20161130, end: 20161130

REACTIONS (2)
  - Dermatitis allergic [Recovered/Resolved]
  - Respiratory depression [Recovered/Resolved]

NARRATIVE: CASE EVENT DATE: 20161130
